FAERS Safety Report 7480352-9 (Version None)
Quarter: 2011Q2

REPORT INFORMATION
  Report Type: 
  Country: None (occurrence: None)
  Receive Date: 20110512
  Receipt Date: 20110512
  Transmission Date: 20111010
  Serious: No
  Sender: FDA-Public Use
  Company Number: None

PATIENT
  Age: 80 Year
  Sex: Male
  Weight: 79.8 kg

DRUGS (2)
  1. BENAZEPRIL HYDROCHLORIDE [Suspect]
     Indication: PANCREATITIS
     Dosage: 40 MG EVERY DAY PO
     Route: 048
     Dates: start: 20051024, end: 20110211
  2. HYDROCHLOROTHIAZIDE [Suspect]
     Dosage: 12.5 MG EVERY DAY PO
     Route: 048
     Dates: start: 19971106, end: 20110211

REACTIONS (2)
  - PANCREATITIS ACUTE [None]
  - INFECTION [None]
